FAERS Safety Report 10178614 (Version 3)
Quarter: 2014Q3

REPORT INFORMATION
  Report Type: Spontaneous
  Country: US (occurrence: None)
  Receive Date: 20140515
  Receipt Date: 20140829
  Transmission Date: 20150326
  Serious: Yes (Other)
  Sender: FDA-Public Use
  Company Number: 2014-US-005644

PATIENT
  Age: 66 Year
  Sex: Female
  Weight: 68.5 kg

DRUGS (20)
  1. IRBESARTAN (IRBESARTAN) [Concomitant]
     Active Substance: IRBESARTAN
  2. NADOLOL (NADOLOL) [Concomitant]
     Active Substance: NADOLOL
  3. RANITIDINE HYDROCHLORIDE (RANITIDINE HYDROCHLORIDE) [Concomitant]
  4. ASPIRIN (ACETYLSALICYLIC ACID) [Concomitant]
     Active Substance: ASPIRIN
  5. POTASSIUM GLUCONATE (POTASSIUM GLUCONATE) [Concomitant]
  6. COLESTIPOL HYDROCHLORIDE (COLESTIPOL HIDROCHLORIDE) [Concomitant]
  7. CRESTOR [Concomitant]
     Active Substance: ROSUVASTATIN CALCIUM
  8. HYDROCHLOROTHIAZIDE (HYDROCHLOROTHIAZIDE) [Concomitant]
     Active Substance: HYDROCHLOROTHIAZIDE
  9. MULTIVITAMINS (ASCORBIC ACID, ERGOCALCIFEROL, FOLIC ACID, NICOTINAMIDE, PANTHENOL,RETINOL, RIBOFLAVIN, THIAMINE HYDROCHLORIDE) [Concomitant]
  10. XYREM [Suspect]
     Active Substance: SODIUM OXYBATE
     Indication: INSOMNIA
     Route: 048
     Dates: start: 200608
  11. PYRIDOSTIGMINE BROMIDE (PYRIDOSTIGMINE BROMIDE) [Concomitant]
  12. NEXIUM [Concomitant]
     Active Substance: ESOMEPRAZOLE MAGNESIUM
  13. PROZAC [Concomitant]
     Active Substance: FLUOXETINE HYDROCHLORIDE
  14. SINGULAIR (MONTELUKAST SODIUM) [Concomitant]
  15. AMLODIPINE BESYLATE (AMLODIPINE BESILATE) [Concomitant]
     Active Substance: AMLODIPINE BESYLATE
  16. DIOVAN [Concomitant]
     Active Substance: VALSARTAN
  17. ZANAFLEX [Concomitant]
     Active Substance: TIZANIDINE HYDROCHLORIDE
  18. NORTRIPTYLINE HYDROCHLORIDE (NORTRIPTYLINE HYDROCHLORIDE) [Concomitant]
  19. VITAMIN D3 (VITAMIN D3) [Concomitant]
  20. CETIRIZINE HYDROCHLORIDE. [Concomitant]
     Active Substance: CETIRIZINE HYDROCHLORIDE

REACTIONS (13)
  - Off label use [None]
  - Sleep apnoea syndrome [None]
  - Headache [None]
  - Memory impairment [None]
  - Concussion [None]
  - Fall [None]
  - Unevaluable event [None]
  - Malaise [None]
  - Convulsion [None]
  - Sleep talking [None]
  - Poor quality sleep [None]
  - Syncope [None]
  - Abnormal sleep-related event [None]

NARRATIVE: CASE EVENT DATE: 2007
